FAERS Safety Report 17839130 (Version 1)
Quarter: 2020Q2

REPORT INFORMATION
  Report Type: Spontaneous
  Country: US (occurrence: US)
  Receive Date: 20200528
  Receipt Date: 20200528
  Transmission Date: 20200714
  Serious: Yes (Hospitalization, Disabling, Other)
  Sender: FDA-Public Use
  Company Number: None

PATIENT
  Age: 51 Year
  Sex: Female
  Weight: 74.25 kg

DRUGS (1)
  1. NP THYROID [Suspect]
     Active Substance: LEVOTHYROXINE\LIOTHYRONINE
     Indication: THYROID HORMONES DECREASED
     Dates: start: 20130401, end: 20191228

REACTIONS (5)
  - Insomnia [None]
  - Palpitations [None]
  - Heart rate increased [None]
  - Anxiety [None]
  - Syncope [None]

NARRATIVE: CASE EVENT DATE: 20190810
